FAERS Safety Report 9856295 (Version 3)
Quarter: 2014Q1

REPORT INFORMATION
  Report Type: Report from Study
  Country: US (occurrence: US)
  Receive Date: 20140130
  Receipt Date: 20140304
  Transmission Date: 20141002
  Serious: Yes (Hospitalization)
  Sender: FDA-Public Use
  Company Number: US-009507513-1401USA010838

PATIENT
  Age: 55 Year
  Sex: Female
  Weight: 59.32 kg

DRUGS (8)
  1. BOCEPREVIR [Suspect]
     Indication: HEPATITIS C
     Dosage: 800 MG, TID
     Route: 048
     Dates: start: 20130823, end: 20140116
  2. REBETOL [Suspect]
     Indication: HEPATITIS C
     Dosage: 600 MG, BID
     Route: 048
     Dates: start: 20130726, end: 20140110
  3. PEGINTERFERON ALFA-2B [Suspect]
     Indication: HEPATITIS C
     Dosage: 56 MICROGRAM, QW
     Route: 058
     Dates: start: 20130726, end: 20140110
  4. TRUVADA [Concomitant]
     Indication: ANTIRETROVIRAL THERAPY
     Dosage: 1 TAB PO DAILY
     Route: 048
     Dates: start: 20120922
  5. ATAZANAVIR [Concomitant]
     Indication: ANTIRETROVIRAL THERAPY
     Dosage: 300 MG, QD
     Route: 048
     Dates: start: 20120922
  6. RITONAVIR [Concomitant]
     Indication: ANTIRETROVIRAL THERAPY
     Dosage: 100 MG, QD
     Route: 048
     Dates: start: 20120922
  7. PRINIVIL [Concomitant]
     Dosage: 10 MG TABLET DAILY
     Route: 048
     Dates: start: 20100715
  8. PROCRIT [Concomitant]
     Dosage: 40,000 UNITS, QW
     Route: 058
     Dates: start: 20130827

REACTIONS (1)
  - Haemoglobin decreased [Recovered/Resolved]
